FAERS Safety Report 5318100-0 (Version None)
Quarter: 2007Q2

REPORT INFORMATION
  Report Type: 
  Country: None (occurrence: None)
  Receive Date: 20070507
  Receipt Date: 20070502
  Transmission Date: 20071010
  Serious: Yes (Life-Threatening, Hospitalization, Other)
  Sender: FDA-Public Use
  Company Number: GB-JNJFOC-20060602875

PATIENT
  Age: 80 Year
  Sex: Female
  Weight: 70 kg

DRUGS (14)
  1. HALOPERIDOL [Suspect]
     Indication: AGITATION
     Route: 048
  2. HALOPERIDOL [Suspect]
     Indication: HALLUCINATION
     Route: 048
  3. ADCAL-D3 [Concomitant]
     Indication: OSTEOPOROSIS
     Route: 048
  4. AMLODIPINE [Concomitant]
     Indication: HYPERTENSION
     Route: 048
  5. ASPIRIN [Concomitant]
     Indication: ACUTE CORONARY SYNDROME
     Route: 048
  6. BENDROFLUMETHIAZIDE [Concomitant]
     Indication: HYPERTENSION
     Route: 048
  7. CLOPIDOGREL [Concomitant]
     Indication: ACUTE CORONARY SYNDROME
     Route: 048
  8. LISINOPRIL [Concomitant]
     Indication: HYPERTENSION
     Route: 048
  9. METOCLOPRAMIDE [Concomitant]
     Indication: NAUSEA
     Route: 042
  10. MORPHINE [Concomitant]
     Indication: PAIN
     Route: 042
  11. OMEPRAZOLE [Concomitant]
     Indication: GASTROINTESTINAL DISORDER
     Route: 048
  12. PARACETAMOL [Concomitant]
     Indication: PAIN
     Route: 048
  13. PREDNISOLONE [Concomitant]
     Indication: RHEUMATOID ARTHRITIS
     Route: 048
  14. TRIMETHOPRIM [Concomitant]
     Indication: URINARY TRACT INFECTION
     Route: 048

REACTIONS (2)
  - CONFUSIONAL STATE [None]
  - LEFT VENTRICULAR FAILURE [None]
